FAERS Safety Report 16416610 (Version 1)
Quarter: 2019Q2

REPORT INFORMATION
  Report Type: Spontaneous
  Country: ES (occurrence: ES)
  Receive Date: 20190611
  Receipt Date: 20190611
  Transmission Date: 20190711
  Serious: Yes (Disabling)
  Sender: FDA-Public Use
  Company Number: ES-009507513-1906ESP003288

PATIENT
  Age: 68 Year
  Sex: Female

DRUGS (1)
  1. PEMBROLIZUMAB. [Suspect]
     Active Substance: PEMBROLIZUMAB
     Indication: GASTRIC CANCER
     Dosage: 120 MG
     Route: 042
     Dates: start: 20181227, end: 20190322

REACTIONS (1)
  - Sjogren^s syndrome [Recovering/Resolving]

NARRATIVE: CASE EVENT DATE: 20190322
